FAERS Safety Report 18558528 (Version 1)
Quarter: 2020Q4

REPORT INFORMATION
  Report Type: Spontaneous
  Country: US (occurrence: US)
  Receive Date: 20201125
  Receipt Date: 20201125
  Transmission Date: 20210114
  Serious: Yes (Other)
  Sender: FDA-Public Use
  Company Number: None

PATIENT
  Age: 60 Year
  Sex: Female
  Weight: 111 kg

DRUGS (2)
  1. BYDUREON [Concomitant]
     Active Substance: EXENATIDE
     Dates: start: 20200701, end: 20201125
  2. BYDUREON [Suspect]
     Active Substance: EXENATIDE
     Indication: DIABETES MELLITUS
     Route: 058
     Dates: start: 20200701, end: 20201125

REACTIONS (4)
  - Pancreatic enzymes increased [None]
  - Lipase increased [None]
  - Abdominal distension [None]
  - Abdominal discomfort [None]

NARRATIVE: CASE EVENT DATE: 20200901
